FAERS Safety Report 25300144 (Version 1)
Quarter: 2025Q2

REPORT INFORMATION
  Report Type: Spontaneous
  Country: US (occurrence: US)
  Receive Date: 20250512
  Receipt Date: 20250512
  Transmission Date: 20250717
  Serious: Yes (Hospitalization, Other)
  Sender: BRISTOL-MYERS SQUIBB COMPANY
  Company Number: US-BRISTOL-MYERS SQUIBB COMPANY-2025-064377

PATIENT
  Age: 76 Year
  Sex: Female

DRUGS (14)
  1. POMALYST [Suspect]
     Active Substance: POMALIDOMIDE
     Indication: Plasma cell myeloma
     Route: 048
     Dates: start: 20250207, end: 20250428
  2. SEVELAMER CARBONATE [Concomitant]
     Active Substance: SEVELAMER CARBONATE
  3. CYANOCOBALAMIN [Concomitant]
     Active Substance: CYANOCOBALAMIN
  4. PANTOPRAZOLE [Concomitant]
     Active Substance: PANTOPRAZOLE
  5. CALCIUM CARBONATE [Concomitant]
     Active Substance: CALCIUM CARBONATE
  6. SIMVASTATIN [Concomitant]
     Active Substance: SIMVASTATIN
  7. TRAMADOL [Concomitant]
     Active Substance: TRAMADOL
  8. TRIAZOLAM [Concomitant]
     Active Substance: TRIAZOLAM
  9. AMLODIPINE BESYLATE [Concomitant]
     Active Substance: AMLODIPINE BESYLATE
  10. FOLIC ACID [Concomitant]
     Active Substance: FOLIC ACID
  11. LEVOTHROID [Concomitant]
     Active Substance: LEVOTHYROXINE SODIUM
  12. DEXAMETHASONE [Concomitant]
     Active Substance: DEXAMETHASONE
  13. LACTULOSE [Concomitant]
     Active Substance: LACTULOSE
  14. PREGABALIN [Concomitant]
     Active Substance: PREGABALIN

REACTIONS (1)
  - Pneumonia [Unknown]

NARRATIVE: CASE EVENT DATE: 20250428
